FAERS Safety Report 11724395 (Version 2)
Quarter: 2015Q4

REPORT INFORMATION
  Report Type: Spontaneous
  Country: US (occurrence: US)
  Receive Date: 20151111
  Receipt Date: 20151124
  Transmission Date: 20160304
  Serious: Yes (Other)
  Sender: FDA-Public Use
  Company Number: US-COVIS PHARMA S.A.R.L.-2015COV00142

PATIENT
  Sex: Male

DRUGS (2)
  1. SOTALOL. [Suspect]
     Active Substance: SOTALOL
     Indication: CARDIAC DISORDER
     Dosage: 40 MG, 1X/DAY
     Route: 048
  2. SOTALOL. [Suspect]
     Active Substance: SOTALOL
     Dosage: 80 MG, 1X/DAY
     Route: 048

REACTIONS (1)
  - Aortic valve replacement [Unknown]
